FAERS Safety Report 4850285-2 (Version None)
Quarter: 2005Q4

REPORT INFORMATION
  Report Type: 
  Country: None (occurrence: None)
  Receive Date: 20051123
  Receipt Date: 20050922
  Transmission Date: 20060501
  Serious: No
  Sender: FDA-Public Use
  Company Number: 217047

PATIENT
  Sex: Female
  Weight: 68 kg

DRUGS (1)
  1. RAPTIVA [Suspect]
     Indication: PSORIASIS
     Dosage: 0.5 ML; 0.7 ML
     Dates: start: 20050804

REACTIONS (2)
  - INJECTION SITE HAEMORRHAGE [None]
  - NAUSEA [None]
